FAERS Safety Report 18464620 (Version 5)
Quarter: 2022Q1

REPORT INFORMATION
  Report Type: Spontaneous
  Country: JP (occurrence: JP)
  Receive Date: 20201104
  Receipt Date: 20220113
  Transmission Date: 20220424
  Serious: Yes (Other)
  Sender: FDA-Public Use
  Company Number: JP-JNJFOC-A-CH2018-165408

PATIENT
  Age: 24 Year
  Sex: Male
  Weight: 39.2 kg

DRUGS (54)
  1. UPTRAVI [Suspect]
     Active Substance: SELEXIPAG
     Indication: Pulmonary arterial hypertension
     Dosage: 0.4 MG, BID
     Route: 048
     Dates: start: 20171101, end: 20171128
  2. UPTRAVI [Suspect]
     Active Substance: SELEXIPAG
     Indication: Pulmonary arterial hypertension
     Dosage: 0.2 MG, QD
     Route: 048
     Dates: start: 20170920, end: 20171003
  3. UPTRAVI [Suspect]
     Active Substance: SELEXIPAG
     Dosage: 0.4 MG, QD
     Route: 048
     Dates: start: 20171004, end: 20171017
  4. UPTRAVI [Suspect]
     Active Substance: SELEXIPAG
     Dosage: 0.6 MG, QD
     Route: 048
     Dates: start: 20171018, end: 20171031
  5. UPTRAVI [Suspect]
     Active Substance: SELEXIPAG
     Dosage: 1 MG, QD
     Route: 048
     Dates: start: 20171129, end: 20171212
  6. UPTRAVI [Suspect]
     Active Substance: SELEXIPAG
     Dosage: 0.6 MG, BID
     Route: 048
     Dates: start: 20171213, end: 20180807
  7. UPTRAVI [Suspect]
     Active Substance: SELEXIPAG
     Dosage: 0.4 MG, BID
     Route: 048
     Dates: start: 20180808
  8. UPTRAVI [Suspect]
     Active Substance: SELEXIPAG
     Route: 048
     Dates: end: 20180328
  9. UPTRAVI [Suspect]
     Active Substance: SELEXIPAG
     Route: 048
     Dates: start: 20180411, end: 20180411
  10. UPTRAVI [Suspect]
     Active Substance: SELEXIPAG
     Route: 048
     Dates: end: 20180327
  11. UPTRAVI [Suspect]
     Active Substance: SELEXIPAG
     Route: 048
     Dates: start: 20180328
  12. UPTRAVI [Suspect]
     Active Substance: SELEXIPAG
     Route: 048
     Dates: start: 20180412
  13. UPTRAVI [Suspect]
     Active Substance: SELEXIPAG
     Route: 048
     Dates: start: 20181010
  14. UPTRAVI [Suspect]
     Active Substance: SELEXIPAG
     Route: 048
     Dates: start: 2018, end: 20181211
  15. OPSUMIT [Suspect]
     Active Substance: MACITENTAN
     Indication: Pulmonary arterial hypertension
     Dosage: 10 MG, QD
     Route: 048
     Dates: start: 20160608
  16. OPSUMIT [Suspect]
     Active Substance: MACITENTAN
     Indication: Pulmonary arterial hypertension
     Dosage: 10 MG, QD
     Route: 048
     Dates: start: 20181010
  17. OLMESARTAN MEDOXOMIL [Suspect]
     Active Substance: OLMESARTAN MEDOXOMIL
     Indication: Right ventricular failure
     Dosage: 10 MG, QD
     Route: 048
     Dates: end: 20180328
  18. OLMESARTAN MEDOXOMIL [Suspect]
     Active Substance: OLMESARTAN MEDOXOMIL
     Dosage: 10 MG, QD
     Route: 048
     Dates: start: 20161109, end: 20180410
  19. OLMESARTAN MEDOXOMIL [Suspect]
     Active Substance: OLMESARTAN MEDOXOMIL
     Dosage: 5 MG, QD
     Route: 048
     Dates: start: 20180411, end: 20180926
  20. OLMESARTAN MEDOXOMIL [Suspect]
     Active Substance: OLMESARTAN MEDOXOMIL
     Route: 048
     Dates: start: 20160207, end: 20161108
  21. OLMESARTAN MEDOXOMIL [Suspect]
     Active Substance: OLMESARTAN MEDOXOMIL
     Route: 048
     Dates: start: 20180103, end: 2018
  22. OLMESARTAN MEDOXOMIL [Suspect]
     Active Substance: OLMESARTAN MEDOXOMIL
     Route: 048
     Dates: start: 20181010
  23. LASIX [Suspect]
     Active Substance: FUROSEMIDE
     Indication: Right ventricular failure
     Dosage: 40 MG, QD
     Route: 048
     Dates: end: 20180327
  24. LASIX [Suspect]
     Active Substance: FUROSEMIDE
     Dosage: 20 MG, QD
     Route: 048
     Dates: start: 20180328, end: 20180925
  25. LASIX [Suspect]
     Active Substance: FUROSEMIDE
     Dosage: 40 MG, QD
     Route: 048
     Dates: start: 20180411, end: 20180411
  26. LASIX [Suspect]
     Active Substance: FUROSEMIDE
     Dosage: 20 MG, QD
     Route: 048
     Dates: start: 20180412
  27. LASIX [Suspect]
     Active Substance: FUROSEMIDE
     Route: 048
     Dates: start: 200501, end: 20180328
  28. LASIX [Suspect]
     Active Substance: FUROSEMIDE
     Route: 048
     Dates: start: 20181010
  29. ADCIRCA [Concomitant]
     Active Substance: TADALAFIL
     Indication: Pulmonary arterial hypertension
     Dosage: 20 MG, BID
     Route: 048
     Dates: start: 20110615
  30. ADCIRCA [Concomitant]
     Active Substance: TADALAFIL
     Dosage: UNK
  31. ADCIRCA [Concomitant]
     Active Substance: TADALAFIL
     Dosage: 40 MG, QD
     Route: 048
     Dates: start: 20111026
  32. DIGOXIN [Concomitant]
     Active Substance: DIGOXIN
     Indication: Right ventricular failure
     Dosage: 0.125 MG, QD
     Route: 048
     Dates: start: 200501, end: 20180328
  33. DIGOXIN [Concomitant]
     Active Substance: DIGOXIN
     Dosage: 0.125 MG, QD
     Route: 048
     Dates: start: 20180411
  34. DIGOXIN [Concomitant]
     Active Substance: DIGOXIN
     Route: 048
     Dates: start: 20181003, end: 2018
  35. DIGOXIN [Concomitant]
     Active Substance: DIGOXIN
     Route: 048
     Dates: start: 20181010
  36. DIGOXIN [Concomitant]
     Active Substance: DIGOXIN
     Dosage: 0.125 MG, QD
     Route: 048
     Dates: start: 200501, end: 20180926
  37. BERAPROST SODIUM [Concomitant]
     Active Substance: BERAPROST SODIUM
     Indication: Pulmonary arterial hypertension
     Dosage: 20 MCG, BID
     Route: 048
     Dates: start: 20070403, end: 20171108
  38. BERAPROST SODIUM [Concomitant]
     Active Substance: BERAPROST SODIUM
     Indication: Pulmonary arterial hypertension
  39. SPIRONOLACTONE [Concomitant]
     Active Substance: SPIRONOLACTONE
     Indication: Right ventricular failure
     Dosage: 25 MG, QD
     Route: 048
     Dates: start: 200501
  40. SPIRONOLACTONE [Concomitant]
     Active Substance: SPIRONOLACTONE
     Route: 048
     Dates: start: 20181010
  41. AMOXICILLIN [Concomitant]
     Active Substance: AMOXICILLIN
     Indication: Dental care
     Dosage: 2 G, QD
  42. INAVIR [Concomitant]
     Indication: Influenza
     Dosage: 40 MG, QD
     Dates: start: 20180124
  43. CARBOCYSTEINE [Concomitant]
     Active Substance: CARBOCYSTEINE
     Indication: Pneumonia
     Dosage: 2000 MG, QD
     Dates: start: 20180124, end: 20180131
  44. CARBOCYSTEINE [Concomitant]
     Active Substance: CARBOCYSTEINE
     Route: 048
     Dates: start: 20180926
  45. ASVERIN [Concomitant]
     Dosage: 60 MG, QD
     Dates: start: 20180124, end: 20180131
  46. OXYGEN [Concomitant]
     Active Substance: OXYGEN
     Route: 055
  47. TRANEXAMIC ACID [Concomitant]
     Active Substance: TRANEXAMIC ACID
     Indication: Pneumonia
     Route: 048
     Dates: start: 20180926
  48. AMBROXOL HYDROCHLORIDE [Concomitant]
     Active Substance: AMBROXOL HYDROCHLORIDE
     Indication: Pneumonia
     Route: 048
     Dates: start: 20180926
  49. DIETARY SUPPLEMENT\PROBIOTICS [Concomitant]
     Active Substance: DIETARY SUPPLEMENT\PROBIOTICS
     Indication: Gastroenteritis
     Route: 048
     Dates: start: 20180926
  50. ALBUTEROL SULFATE [Concomitant]
     Active Substance: ALBUTEROL SULFATE
     Indication: Pneumonia
     Route: 055
     Dates: start: 20180926
  51. BROMHEXINE HYDROCHLORIDE [Concomitant]
     Active Substance: BROMHEXINE HYDROCHLORIDE
     Indication: Pneumonia
     Route: 055
     Dates: start: 20180926
  52. ISOTONIC SODIUM CHLORIDE SOLUTION [Concomitant]
     Active Substance: SODIUM CHLORIDE
     Indication: Pneumonia
     Route: 065
     Dates: start: 20180926
  53. OZEX [TOSUFLOXACIN TOSILATE] [Concomitant]
     Indication: Pneumonia
     Route: 048
     Dates: start: 20181003
  54. CEFDITOREN PIVOXIL [Concomitant]
     Active Substance: CEFDITOREN PIVOXIL
     Indication: Pneumonia
     Dosage: AFTER EACH MEAL
     Route: 048
     Dates: start: 20180926

REACTIONS (13)
  - Cardiac failure [Recovered/Resolved]
  - Pneumonia [Recovered/Resolved]
  - Diarrhoea [Recovering/Resolving]
  - Hypotension [Recovered/Resolved]
  - Blood creatinine increased [Recovering/Resolving]
  - Brain natriuretic peptide increased [Recovered/Resolved]
  - Headache [Recovered/Resolved]
  - Upper respiratory tract inflammation [Recovered/Resolved]
  - Parotitis [Recovered/Resolved]
  - Renal failure [Recovered/Resolved]
  - Blood pressure decreased [Recovered/Resolved]
  - Renal failure [Recovered/Resolved]
  - Gastroenteritis [Unknown]

NARRATIVE: CASE EVENT DATE: 20171101
